FAERS Safety Report 25191969 (Version 2)
Quarter: 2025Q2

REPORT INFORMATION
  Report Type: Spontaneous
  Country: PL (occurrence: PL)
  Receive Date: 20250414
  Receipt Date: 20250428
  Transmission Date: 20250716
  Serious: Yes (Other)
  Sender: AMGEN
  Company Number: PL-AMGEN-POLSP2025068131

PATIENT
  Age: 44 Year
  Sex: Female

DRUGS (10)
  1. PROLIA [Suspect]
     Active Substance: DENOSUMAB
     Indication: Osteoporotic fracture
     Route: 065
     Dates: start: 2012
  2. PREDNISOLONE [Concomitant]
     Active Substance: PREDNISOLONE
  3. HYDROCORTISONE [Concomitant]
     Active Substance: HYDROCORTISONE
  4. POTASSIUM CHLORIDE [Concomitant]
     Active Substance: POTASSIUM CHLORIDE
  5. Ezehron [Concomitant]
  6. EPLERENONE [Concomitant]
     Active Substance: EPLERENONE
  7. BISOPROLOL FUMARATE [Concomitant]
     Active Substance: BISOPROLOL FUMARATE
  8. BRINTELLIX [Concomitant]
     Active Substance: VORTIOXETINE HYDROBROMIDE
  9. PALEXIA [Concomitant]
     Active Substance: TAPENTADOL HYDROCHLORIDE
  10. CALCIUM CITRATE [Concomitant]
     Active Substance: CALCIUM CITRATE

REACTIONS (13)
  - Invasive ductal breast carcinoma [Unknown]
  - Uveitis [Unknown]
  - Amyloidosis [Unknown]
  - Adrenal insufficiency [Unknown]
  - Hip arthroplasty [Unknown]
  - Drug ineffective [Unknown]
  - Fracture [Unknown]
  - Haemorrhage [Unknown]
  - Foot fracture [Unknown]
  - Osteoarthritis [Unknown]
  - Goitre [Unknown]
  - Hypercholesterolaemia [Unknown]
  - Hypertension [Unknown]

NARRATIVE: CASE EVENT DATE: 20160101
